FAERS Safety Report 19942785 (Version 1)
Quarter: 2021Q4

REPORT INFORMATION
  Report Type: Spontaneous
  Country: US (occurrence: US)
  Receive Date: 20211011
  Receipt Date: 20211011
  Transmission Date: 20220303
  Serious: Yes (Hospitalization)
  Sender: FDA-Public Use
  Company Number: None

PATIENT
  Sex: Female
  Weight: 44.55 kg

DRUGS (17)
  1. MYALEPT [Suspect]
     Active Substance: METRELEPTIN
     Indication: Lipodystrophy acquired
     Route: 058
  2. BACTERIOSTATIC WATER [Concomitant]
     Active Substance: WATER
  3. POTASSIUM [Concomitant]
     Active Substance: POTASSIUM
  4. PEPCID [Concomitant]
     Active Substance: FAMOTIDINE
  5. LEVOTHYROXINE [Concomitant]
     Active Substance: LEVOTHYROXINE
  6. CITALOPRAM [Concomitant]
     Active Substance: CITALOPRAM HYDROBROMIDE
  7. AMITRIPTYLINE [Concomitant]
     Active Substance: AMITRIPTYLINE
  8. LISINOPRIL [Concomitant]
     Active Substance: LISINOPRIL
  9. COLCHICINE [Concomitant]
     Active Substance: COLCHICINE
  10. BACLOFEN [Concomitant]
     Active Substance: BACLOFEN
  11. TRAMADOL [Concomitant]
     Active Substance: TRAMADOL
  12. ONDANSETRON [Concomitant]
     Active Substance: ONDANSETRON
  13. ALLOPURINOL [Concomitant]
     Active Substance: ALLOPURINOL
  14. AMLODIPINE [Concomitant]
     Active Substance: AMLODIPINE BESYLATE
  15. MAGNESIUM [Concomitant]
     Active Substance: MAGNESIUM
  16. GABAPENTIN [Concomitant]
     Active Substance: GABAPENTIN
  17. HYDROXYZINE [Concomitant]
     Active Substance: HYDROXYZINE HYDROCHLORIDE

REACTIONS (2)
  - Pneumonia [None]
  - Therapy interrupted [None]
